FAERS Safety Report 9832285 (Version 2)
Quarter: 2014Q1

REPORT INFORMATION
  Report Type: Spontaneous
  Country: US (occurrence: US)
  Receive Date: 20140121
  Receipt Date: 20140207
  Transmission Date: 20141002
  Serious: Yes (Death, Life-Threatening, Hospitalization, Other)
  Sender: FDA-Public Use
  Company Number: US-BRISTOL-MYERS SQUIBB COMPANY-20046116

PATIENT
  Age: 66 Year
  Sex: Female

DRUGS (2)
  1. SPRYCEL (PH+ALL) TABS [Suspect]
     Indication: ACUTE LYMPHOCYTIC LEUKAEMIA
     Dosage: 1DF= 70MG(LOT:3C6040C) OR 100MG(LOT:3E6006C)?DRUG WAS HOLD ON:23FEB2012?RESUMED ON 08MAR2012
     Route: 048
     Dates: start: 20111115, end: 20131120
  2. PROCHLORPERAZINE [Suspect]

REACTIONS (7)
  - Malignant neoplasm progression [Fatal]
  - Shock haemorrhagic [Fatal]
  - Thrombocytopenia [Unknown]
  - Pleural effusion [Unknown]
  - Full blood count decreased [Unknown]
  - Decreased appetite [Unknown]
  - Tardive dyskinesia [Unknown]
